FAERS Safety Report 6137460-4 (Version None)
Quarter: 2009Q1

REPORT INFORMATION
  Report Type: 
  Country: None (occurrence: None)
  Receive Date: 20090330
  Receipt Date: 20090325
  Transmission Date: 20090719
  Serious: Yes (Death)
  Sender: FDA-Public Use
  Company Number: US-GILEAD-2009-0021102

PATIENT
  Sex: Female

DRUGS (24)
  1. LETAIRIS [Suspect]
     Indication: PULMONARY ARTERIAL HYPERTENSION
     Route: 048
     Dates: start: 20090305
  2. OXYGEN [Concomitant]
  3. CIALIS [Concomitant]
  4. TIKOSYN [Concomitant]
  5. LISINOPRIL [Concomitant]
  6. BUMETANIDE [Concomitant]
  7. PRAVASTATIN SODIUM [Concomitant]
  8. DIGOXIN [Concomitant]
  9. TASPRIN [Concomitant]
  10. IPRATROPIUM BROMIDE [Concomitant]
  11. PULMICORT-100 [Concomitant]
  12. BENZONATATE [Concomitant]
  13. TUSSIONEX [Concomitant]
  14. MUCINEX DM [Concomitant]
  15. TEMAZEPAM [Concomitant]
  16. ALPRAZOLAM [Concomitant]
  17. CENTRUM SILVER [Concomitant]
  18. JANUVIA [Concomitant]
  19. TYLENOL [Concomitant]
  20. BACLOFEN [Concomitant]
  21. PRIMIDONE [Concomitant]
  22. POTASSIUM CHLORIDE [Concomitant]
  23. MIRALAX [Concomitant]
  24. ASCORBIC ACID [Concomitant]

REACTIONS (1)
  - DEATH [None]
